FAERS Safety Report 4758804-1 (Version None)
Quarter: 2005Q3

REPORT INFORMATION
  Report Type: 
  Country: None (occurrence: None)
  Receive Date: 20050901
  Receipt Date: 20050720
  Transmission Date: 20060218
  Serious: Yes (Hospitalization)
  Sender: FDA-Public Use
  Company Number: PHBS2005BR10624

PATIENT
  Age: 81 Year
  Sex: Male
  Weight: 90 kg

DRUGS (8)
  1. EXELON [Suspect]
     Indication: DEMENTIA ALZHEIMER'S TYPE
     Dosage: 1.5 MG, BID
     Route: 048
     Dates: start: 20050601
  2. PROPRANOLOL [Concomitant]
     Dosage: 40 MG, BID
     Route: 048
  3. CAPTOPRIL [Concomitant]
     Dosage: 25 MG, TID
     Route: 048
  4. SUSTRATE [Concomitant]
     Dosage: 10 MG, TID
     Route: 048
  5. TICLID [Concomitant]
     Dosage: 250 MG, BID
     Route: 048
  6. LIPITOR [Concomitant]
     Dosage: 10 MG, QD
     Route: 048
  7. AMARYL [Concomitant]
     Dosage: 2 MG, QD
     Route: 048
  8. METFORMIN [Concomitant]
     Dosage: UNK, QD
     Route: 048

REACTIONS (5)
  - DEMENTIA ALZHEIMER'S TYPE [None]
  - DISEASE PROGRESSION [None]
  - HODGKIN'S DISEASE [None]
  - OEDEMA PERIPHERAL [None]
  - PAIN IN EXTREMITY [None]
